FAERS Safety Report 5715477-9 (Version None)
Quarter: 2008Q2

REPORT INFORMATION
  Report Type: 
  Country: None (occurrence: None)
  Receive Date: 20080423
  Receipt Date: 20080415
  Transmission Date: 20081010
  Serious: Yes (Other)
  Sender: FDA-Public Use
  Company Number: SE-ALLERGAN-0713960US

PATIENT
  Sex: Male

DRUGS (3)
  1. BOTOX [Suspect]
     Indication: NEUROGENIC BLADDER
     Dosage: 400 UNITS, SINGLE
     Route: 030
     Dates: start: 20031009, end: 20031009
  2. BACLOFEN [Concomitant]
  3. CIPROFLOXACIN HCL [Concomitant]
     Indication: PROPHYLAXIS
     Dosage: UNK, BID
     Dates: start: 20031009, end: 20031009

REACTIONS (4)
  - DIPLOPIA [None]
  - DYSPNOEA [None]
  - MUSCLE SPASTICITY [None]
  - MUSCULAR WEAKNESS [None]
